FAERS Safety Report 10751493 (Version 1)
Quarter: 2015Q1

REPORT INFORMATION
  Report Type: Spontaneous
  Country: US (occurrence: None)
  Receive Date: 20150126
  Receipt Date: 20150126
  Transmission Date: 20150721
  Serious: No
  Sender: FDA-Public Use
  Company Number: MC201300136

PATIENT
  Age: 62 Year
  Sex: Male

DRUGS (1)
  1. ANGIOMAX [Suspect]
     Active Substance: BIVALIRUDIN
     Indication: PERCUTANEOUS CORONARY INTERVENTION
     Dosage: 16.5 ML, BOLUS (0.75 MG/KG) (16.5ML,BOLUS), INTRAVENOUSE (NOT OTHERWISE SPECIFIED)
     Dates: start: 201303

REACTIONS (2)
  - Coronary artery thrombosis [None]
  - Drug ineffective [None]

NARRATIVE: CASE EVENT DATE: 201303
